FAERS Safety Report 18417668 (Version 1)
Quarter: 2020Q4

REPORT INFORMATION
  Report Type: Spontaneous
  Country: US (occurrence: US)
  Receive Date: 20201022
  Receipt Date: 20201022
  Transmission Date: 20210114
  Serious: No
  Sender: FDA-Public Use
  Company Number: US-SEATTLE GENETICS-2020SGN03833

PATIENT
  Sex: Female

DRUGS (3)
  1. CAPECITABINE. [Suspect]
     Active Substance: CAPECITABINE
     Indication: BREAST CANCER FEMALE
     Dosage: UNK
     Route: 065
  2. KEPPRA [Concomitant]
     Active Substance: LEVETIRACETAM
     Dosage: 1500MG TWICE DAILY
  3. TUKYSA [Suspect]
     Active Substance: TUCATINIB
     Indication: BREAST CANCER FEMALE
     Dosage: UNK
     Route: 065

REACTIONS (14)
  - Blood potassium decreased [Unknown]
  - Diarrhoea [Unknown]
  - Recall phenomenon [Unknown]
  - Blood creatinine increased [Unknown]
  - Unevaluable event [Unknown]
  - Palmar-plantar erythrodysaesthesia syndrome [Unknown]
  - Hepatic enzyme increased [Unknown]
  - Rash [Recovered/Resolved]
  - Product dose omission issue [Unknown]
  - Photosensitivity reaction [Unknown]
  - Faeces soft [Unknown]
  - Nausea [Unknown]
  - White blood cell count decreased [Recovering/Resolving]
  - Skin hypertrophy [Unknown]
